FAERS Safety Report 5592963-6 (Version None)
Quarter: 2008Q1

REPORT INFORMATION
  Report Type: 
  Country: None (occurrence: None)
  Receive Date: 20080114
  Receipt Date: 20080114
  Transmission Date: 20080703
  Serious: No
  Sender: FDA-Public Use
  Company Number: None

PATIENT
  Age: 30 Year
  Sex: Female
  Weight: 52.6173 kg

DRUGS (4)
  1. YAZ [Suspect]
     Indication: CONTRACEPTION
     Dosage: 1  QD  PO
     Route: 048
     Dates: start: 20070625, end: 20071226
  2. FLAGYL [Concomitant]
  3. BENADRYL [Concomitant]
  4. DESOGEN [Suspect]

REACTIONS (5)
  - AFFECT LABILITY [None]
  - ANXIETY [None]
  - FAMILY STRESS [None]
  - INSOMNIA [None]
  - MOOD SWINGS [None]
